FAERS Safety Report 23936174 (Version 1)
Quarter: 2024Q2

REPORT INFORMATION
  Report Type: Report from Study
  Country: TR (occurrence: TR)
  Receive Date: 20240604
  Receipt Date: 20240604
  Transmission Date: 20240716
  Serious: Yes (Life-Threatening, Hospitalization, Other)
  Sender: FDA-Public Use
  Company Number: TR-SUN PHARMACEUTICAL INDUSTRIES LTD-2024R1-449612

PATIENT
  Age: 15 Year
  Sex: Male

DRUGS (1)
  1. VERAPAMIL [Suspect]
     Active Substance: VERAPAMIL HYDROCHLORIDE
     Indication: Product used for unknown indication
     Dosage: UNK (1600 MG, 40 TABLETS)
     Route: 048

REACTIONS (8)
  - Intentional overdose [Unknown]
  - Toxicity to various agents [Unknown]
  - Suicide attempt [Unknown]
  - Blood pressure decreased [Recovering/Resolving]
  - Heart rate decreased [Unknown]
  - Loss of consciousness [Unknown]
  - Respiratory failure [Unknown]
  - Oxygen saturation decreased [Unknown]
